FAERS Safety Report 5032728-7 (Version None)
Quarter: 2006Q2

REPORT INFORMATION
  Report Type: 
  Country: None (occurrence: None)
  Receive Date: 20060620
  Receipt Date: 20060620
  Transmission Date: 20061013
  Serious: Yes (Other)
  Sender: FDA-Public Use
  Company Number: None

PATIENT
  Sex: Female
  Weight: 50.8029 kg

DRUGS (1)
  1. ATRIDOX [Suspect]
     Indication: GINGIVAL DISORDER
     Dosage: 1 APPLICATION    DENTAL
     Route: 004
     Dates: start: 20060605, end: 20060614

REACTIONS (3)
  - APPLICATION SITE PAIN [None]
  - PAIN [None]
  - PHARMACEUTICAL PRODUCT COMPLAINT [None]
